FAERS Safety Report 5626058-X (Version None)
Quarter: 2008Q1

REPORT INFORMATION
  Report Type: 
  Country: None (occurrence: None)
  Receive Date: 20080213
  Receipt Date: 20080213
  Transmission Date: 20080703
  Serious: Yes (Life-Threatening, Hospitalization)
  Sender: FDA-Public Use
  Company Number: None

PATIENT
  Sex: Female
  Weight: 79.3795 kg

DRUGS (2)
  1. MERIDIA [Suspect]
     Indication: WEIGHT DECREASED
     Dates: start: 20071101, end: 20071116
  2. MERIDIA [Suspect]
     Dates: start: 20070701, end: 20071101

REACTIONS (5)
  - AMNESIA [None]
  - ASTHENIA [None]
  - DYSPNOEA [None]
  - HEART RATE INCREASED [None]
  - ILL-DEFINED DISORDER [None]
